FAERS Safety Report 20953783 (Version 3)
Quarter: 2022Q3

REPORT INFORMATION
  Report Type: Spontaneous
  Country: JP (occurrence: JP)
  Receive Date: 20220614
  Receipt Date: 20220710
  Transmission Date: 20221026
  Serious: Yes (Other)
  Sender: FDA-Public Use
  Company Number: JP-NOVARTISPH-NVSJ2022JP092063

PATIENT
  Age: 83 Year
  Sex: Male

DRUGS (1)
  1. GLYCOPYRRONIUM\INDACATEROL [Suspect]
     Active Substance: GLYCOPYRRONIUM\INDACATEROL
     Indication: Chronic obstructive pulmonary disease
     Dosage: UNK
     Route: 055

REACTIONS (4)
  - Cardiac failure [Unknown]
  - Atrial natriuretic peptide increased [Unknown]
  - Decreased appetite [Unknown]
  - Dyspnoea [Unknown]
